FAERS Safety Report 15273273 (Version 1)
Quarter: 2018Q3

REPORT INFORMATION
  Report Type: Spontaneous
  Country: ES (occurrence: ES)
  Receive Date: 20180813
  Receipt Date: 20180813
  Transmission Date: 20181010
  Serious: Yes (Life-Threatening, Hospitalization)
  Sender: FDA-Public Use
  Company Number: PHHY2018ES072001

PATIENT
  Age: 43 Year
  Sex: Male
  Weight: 60 kg

DRUGS (2)
  1. COSENTYX [Suspect]
     Active Substance: SECUKINUMAB
     Dosage: 450 MG, TOTAL
     Route: 042
     Dates: start: 20180130
  2. COSENTYX [Suspect]
     Active Substance: SECUKINUMAB
     Indication: ANKYLOSING SPONDYLITIS
     Dosage: 450 MG, TOTAL
     Route: 042
     Dates: start: 20180116

REACTIONS (2)
  - Pneumonitis [Recovered/Resolved with Sequelae]
  - Influenza A virus test positive [Recovered/Resolved with Sequelae]

NARRATIVE: CASE EVENT DATE: 20180206
